FAERS Safety Report 4616883-6 (Version None)
Quarter: 2005Q1

REPORT INFORMATION
  Report Type: 
  Country: None (occurrence: None)
  Receive Date: 20050321
  Receipt Date: 20030918
  Transmission Date: 20050727
  Serious: Yes (Death)
  Sender: FDA-Public Use
  Company Number: 6135

PATIENT
  Age: 81 Year
  Sex: Female

DRUGS (2)
  1. FLUOROURACIL [Suspect]
     Indication: COLORECTAL CANCER
     Dosage: 1593.75 MG/M2 PER_CYCLE IV
     Route: 042
  2. LEUCOVORIN CALCIUM [Suspect]
     Indication: COLORECTAL CANCER
     Dosage: 75 MG/M2 PER_CYCLE IV
     Route: 042

REACTIONS (2)
  - DRUG TOXICITY [None]
  - SMALL INTESTINAL OBSTRUCTION [None]
